FAERS Safety Report 25010980 (Version 1)
Quarter: 2025Q1

REPORT INFORMATION
  Report Type: Spontaneous
  Country: US (occurrence: US)
  Receive Date: 20250225
  Receipt Date: 20250225
  Transmission Date: 20250409
  Serious: No
  Sender: JOHNSON AND JOHNSON
  Company Number: US-JNJFOC-20250238277

PATIENT
  Age: 16 Year
  Sex: Female
  Weight: 86.6 kg

DRUGS (8)
  1. MACITENTAN\TADALAFIL [Suspect]
     Active Substance: MACITENTAN\TADALAFIL
     Indication: Product used for unknown indication
     Route: 048
  2. TREPROSTINIL SODIUM [Suspect]
     Active Substance: TREPROSTINIL SODIUM
     Indication: Pulmonary arterial hypertension
  3. TREPROSTINIL SODIUM [Suspect]
     Active Substance: TREPROSTINIL SODIUM
     Dates: start: 20240425
  4. SODIUM CHLORIDE [Concomitant]
     Active Substance: SODIUM CHLORIDE
  5. OXYGEN [Concomitant]
     Active Substance: OXYGEN
  6. ONDANSETRON HYDROCHLORIDE [Concomitant]
     Active Substance: ONDANSETRON HYDROCHLORIDE
  7. ZYRTEC [Concomitant]
     Active Substance: CETIRIZINE HYDROCHLORIDE
  8. IBU [Concomitant]
     Active Substance: IBUPROFEN

REACTIONS (3)
  - Infusion site erythema [Unknown]
  - Liver function test increased [Unknown]
  - Off label use [Unknown]
